FAERS Safety Report 21789973 (Version 1)
Quarter: 2022Q4

REPORT INFORMATION
  Report Type: Spontaneous
  Country: JP (occurrence: JP)
  Receive Date: 20221228
  Receipt Date: 20221228
  Transmission Date: 20230113
  Serious: Yes (Hospitalization, Other)
  Sender: FDA-Public Use
  Company Number: JP-PFIZER INC-202201359399

PATIENT
  Age: 73 Year
  Sex: Male
  Weight: 64.5 kg

DRUGS (6)
  1. VYNDAQEL [Suspect]
     Active Substance: TAFAMIDIS MEGLUMINE
     Indication: Cardiac amyloidosis
     Dosage: IN THE MORNING
     Route: 048
     Dates: start: 20220909, end: 20221208
  2. JARDIANCE [Concomitant]
     Active Substance: EMPAGLIFLOZIN
     Indication: Cardiac failure chronic
     Dosage: 10 MG
     Route: 048
     Dates: start: 20220531, end: 20221205
  3. TADALAFIL [Concomitant]
     Active Substance: TADALAFIL
     Indication: Benign prostatic hyperplasia
     Dosage: 2.5 MG
     Route: 048
     Dates: start: 2018, end: 20221218
  4. NAFTOPIDIL [Concomitant]
     Active Substance: NAFTOPIDIL
     Indication: Benign prostatic hyperplasia
     Dosage: 75 MG
     Route: 048
     Dates: start: 2018, end: 20221218
  5. SOLIFENACIN [Concomitant]
     Active Substance: SOLIFENACIN
     Indication: Benign prostatic hyperplasia
     Dosage: 5 MG
     Route: 048
     Dates: start: 2018, end: 20221218
  6. HERBALS [Concomitant]
     Active Substance: HERBALS
     Dosage: 1 DF
     Route: 048
     Dates: end: 20221218

REACTIONS (7)
  - Diarrhoea [Unknown]
  - Abdominal pain [Unknown]
  - Urinary tract pain [Unknown]
  - Colitis ischaemic [Unknown]
  - Dysuria [Unknown]
  - Faeces discoloured [Unknown]
  - Faeces soft [Unknown]

NARRATIVE: CASE EVENT DATE: 20221107
